FAERS Safety Report 6125121-7 (Version None)
Quarter: 2009Q1

REPORT INFORMATION
  Report Type: 
  Country: None (occurrence: None)
  Receive Date: 20090318
  Receipt Date: 20090311
  Transmission Date: 20090719
  Serious: Yes (Death, Hospitalization)
  Sender: FDA-Public Use
  Company Number: 232101K09USA

PATIENT
  Age: 59 Year
  Sex: Female
  Weight: 100 kg

DRUGS (2)
  1. REBIF [Suspect]
     Indication: MULTIPLE SCLEROSIS
     Dosage: 44 MCG, 3 IN 1 WEEKS, SUBCUTANEOUS
     Route: 058
     Dates: start: 20050101, end: 20080901
  2. UNSPECIFIED MEDICATION FOR HIGH BLOOD PRESSURE (ALL OTHER THERAPEUTIC [Concomitant]

REACTIONS (2)
  - BRAIN CANCER METASTATIC [None]
  - CONVULSION [None]
